FAERS Safety Report 4339310-5 (Version None)
Quarter: 2004Q2

REPORT INFORMATION
  Report Type: 
  Country: None (occurrence: None)
  Receive Date: 20040414
  Receipt Date: 20040414
  Transmission Date: 20050107
  Serious: Yes (Death)
  Sender: FDA-Public Use
  Company Number: None

PATIENT
  Age: 83 Year
  Sex: Male
  Weight: 73.0291 kg

DRUGS (3)
  1. PRAVACHOL [Suspect]
     Indication: RENAL FAILURE ACUTE
     Dosage: 1 DAILY ORAL
     Route: 048
  2. PRAVACHOL [Suspect]
     Indication: RHABDOMYOLYSIS
     Dosage: 1 DAILY ORAL
     Route: 048
  3. COUMADIN [Suspect]
     Dosage: 1 DAILY ORAL
     Route: 048

REACTIONS (4)
  - CANDIDA SEPSIS [None]
  - CENTRAL LINE INFECTION [None]
  - RENAL FAILURE ACUTE [None]
  - RHABDOMYOLYSIS [None]
